FAERS Safety Report 4627941-4 (Version None)
Quarter: 2005Q2

REPORT INFORMATION
  Report Type: 
  Country: None (occurrence: None)
  Receive Date: 20050401
  Receipt Date: 20050322
  Transmission Date: 20051028
  Serious: Yes (Other)
  Sender: FDA-Public Use
  Company Number: 2005048605

PATIENT
  Age: 80 Year
  Sex: Male

DRUGS (5)
  1. NORVASC [Suspect]
     Indication: ILL-DEFINED DISORDER
  2. TAMSULOSIN HCL [Suspect]
     Indication: ILL-DEFINED DISORDER
  3. ENOXAPARIN (HEPARN) [Suspect]
     Indication: ILL-DEFINED DISORDER
  4. DEXAMETHASONE [Suspect]
     Indication: ILL-DEFINED DISORDER
  5. LANSOPRAZOLE [Suspect]
     Indication: ILL-DEFINED DISORDER

REACTIONS (1)
  - DEAFNESS [None]
